FAERS Safety Report 16172948 (Version 2)
Quarter: 2019Q2

REPORT INFORMATION
  Report Type: Spontaneous
  Country: US (occurrence: US)
  Receive Date: 20190409
  Receipt Date: 20190410
  Transmission Date: 20190711
  Serious: No
  Sender: FDA-Public Use
  Company Number: US-PFIZER INC-2019140125

PATIENT
  Age: 52 Year
  Sex: Female
  Weight: 62.14 kg

DRUGS (1)
  1. ALPRAZOLAM. [Suspect]
     Active Substance: ALPRAZOLAM
     Indication: ANXIETY
     Dosage: 2 MG, 4X/DAY
     Route: 048
     Dates: start: 2015

REACTIONS (8)
  - Intentional product misuse [Not Recovered/Not Resolved]
  - Blood disorder [Unknown]
  - Paraesthesia [Unknown]
  - Drug ineffective [Unknown]
  - Poor quality product administered [Unknown]
  - Lip swelling [Unknown]
  - Product physical issue [Unknown]
  - Peripheral swelling [Recovered/Resolved]

NARRATIVE: CASE EVENT DATE: 201902
